FAERS Safety Report 10013548 (Version 2)
Quarter: 2014Q1

REPORT INFORMATION
  Report Type: Spontaneous
  Country: IT (occurrence: IT)
  Receive Date: 20140315
  Receipt Date: 20140317
  Transmission Date: 20141002
  Serious: Yes (Other)
  Sender: FDA-Public Use
  Company Number: IT-ROCHE-1363357

PATIENT
  Age: 56 Year
  Sex: Male
  Weight: 80 kg

DRUGS (4)
  1. COPEGUS [Suspect]
     Indication: ANTIVIRAL TREATMENT
     Dosage: 6 TAB DAILY.
     Route: 048
     Dates: start: 20130426
  2. COPEGUS [Interacting]
     Dosage: 3 TAB DAILY. DOSE REDUCED.
     Route: 065
     Dates: start: 20130806, end: 20140225
  3. PEGASYS [Interacting]
     Indication: ANTIVIRAL TREATMENT
     Route: 058
     Dates: start: 20130426, end: 20140225
  4. VICTRELIS [Interacting]
     Indication: ANTIVIRAL TREATMENT
     Route: 048
     Dates: start: 20130527, end: 20140106

REACTIONS (2)
  - Drug interaction [Unknown]
  - Pancytopenia [Recovering/Resolving]
